FAERS Safety Report 11883518 (Version 2)
Quarter: 2016Q1

REPORT INFORMATION
  Report Type: Spontaneous
  Country: IN (occurrence: IN)
  Receive Date: 20151231
  Receipt Date: 20160106
  Transmission Date: 20160526
  Serious: Yes (Death, Other)
  Sender: FDA-Public Use
  Company Number: PHHY2015IN170272

PATIENT
  Sex: Female
  Weight: .73 kg

DRUGS (5)
  1. ESTRADIOL. [Suspect]
     Active Substance: ESTRADIOL
     Indication: FOETAL EXPOSURE DURING PREGNANCY
     Route: 064
  2. HEPARIN [Suspect]
     Active Substance: HEPARIN SODIUM
     Indication: FOETAL EXPOSURE DURING PREGNANCY
     Route: 064
  3. INSULIN [Suspect]
     Active Substance: INSULIN NOS
     Indication: FOETAL EXPOSURE DURING PREGNANCY
     Route: 064
  4. PROGESTERONE. [Suspect]
     Active Substance: PROGESTERONE
     Indication: FOETAL EXPOSURE DURING PREGNANCY
     Route: 064
  5. ASPIRIN. [Suspect]
     Active Substance: ASPIRIN
     Indication: FOETAL EXPOSURE DURING PREGNANCY
     Route: 064

REACTIONS (8)
  - Pericardial effusion [Fatal]
  - Hydrops foetalis [Fatal]
  - Cardiomegaly [Fatal]
  - Foetal exposure during pregnancy [Unknown]
  - Low birth weight baby [Unknown]
  - Diastolic dysfunction [Fatal]
  - Premature baby [Unknown]
  - Umbilical cord vascular disorder [Fatal]
